FAERS Safety Report 22587113 (Version 3)
Quarter: 2024Q1

REPORT INFORMATION
  Report Type: Spontaneous
  Country: US (occurrence: US)
  Receive Date: 20230612
  Receipt Date: 20240314
  Transmission Date: 20240410
  Serious: No
  Sender: FDA-Public Use
  Company Number: US-SA-SAC20230607000237

PATIENT
  Age: 57 Year
  Sex: Female
  Weight: 73 kg

DRUGS (5)
  1. DUPIXENT [Interacting]
     Active Substance: DUPILUMAB
     Indication: Pruritus
     Dosage: 300 MG, QOW
     Route: 058
     Dates: start: 202209
  2. DUPIXENT [Interacting]
     Active Substance: DUPILUMAB
     Indication: Dermatitis
     Dosage: 300 MG, QW
     Route: 058
  3. DUPIXENT [Interacting]
     Active Substance: DUPILUMAB
     Indication: Illness
     Dosage: 300 MG, QOW
     Route: 058
  4. LORAZEPAM [Interacting]
     Active Substance: LORAZEPAM
     Indication: Antidepressant therapy
  5. FLUVOXAMINE [Interacting]
     Active Substance: FLUVOXAMINE
     Indication: Antidepressant therapy

REACTIONS (8)
  - Skin haemorrhage [Unknown]
  - Nasal discomfort [Unknown]
  - Nasal pruritus [Unknown]
  - Rash [Unknown]
  - Pruritus [Unknown]
  - Drug interaction [Unknown]
  - Drug ineffective for unapproved indication [Unknown]
  - Product use in unapproved indication [Unknown]

NARRATIVE: CASE EVENT DATE: 20220101
